FAERS Safety Report 4517408-6 (Version None)
Quarter: 2004Q4

REPORT INFORMATION
  Report Type: 
  Country: None (occurrence: None)
  Receive Date: 20041022
  Receipt Date: 20040726
  Transmission Date: 20050328
  Serious: No
  Sender: FDA-Public Use
  Company Number: 800061

PATIENT
  Age: 15 Year
  Sex: Male
  Weight: 80 kg

DRUGS (19)
  1. EXTRANEAL [Suspect]
     Indication: PERITONEAL DIALYSIS
     Dosage: 1 L; QD; INTRAPERITONEAL
     Route: 033
     Dates: start: 20040623, end: 20040702
  2. DIANEAL [Concomitant]
  3. ALBUTEROL [Concomitant]
  4. AMLODIPINE [Concomitant]
  5. CALCITRIOL [Concomitant]
  6. CALCIUM CARBONATE [Concomitant]
  7. DIALYVITE [Concomitant]
  8. EPOGEN [Concomitant]
  9. FERROUS SULFATE TAB [Concomitant]
  10. FLORINEF [Concomitant]
  11. FLOVENT [Concomitant]
  12. INSULIN LISPRO [Concomitant]
  13. REGULAR INSULIN [Concomitant]
  14. LASIX-K [Concomitant]
  15. LIPITOR [Concomitant]
  16. LOSARTAN [Concomitant]
  17. MINOXIDIL [Concomitant]
  18. MIRALAX [Concomitant]
  19. NIFEDIPINE [Concomitant]

REACTIONS (2)
  - DERMATITIS EXFOLIATIVE [None]
  - RASH GENERALISED [None]
